FAERS Safety Report 9157614 (Version 1)
Quarter: 2013Q1

REPORT INFORMATION
  Report Type: Spontaneous
  Country: IT (occurrence: None)
  Receive Date: 20130215
  Receipt Date: 20130215
  Transmission Date: 20140127
  Serious: Yes (Hospitalization)
  Sender: FDA-Public Use
  Company Number: 2013AP002390

PATIENT
  Age: 78 Year
  Sex: Male

DRUGS (6)
  1. RAMIPRIL (RAMIPRIL) [Suspect]
     Indication: HYPERTENSION
     Route: 048
     Dates: start: 20090101, end: 20130113
  2. TORVAST (ATORVASTATIN CALCIUM) [Concomitant]
  3. CARDIRENE (ACETYLSALICYLATE LYSINE) [Concomitant]
  4. ALLOPURINOL [Concomitant]
  5. SERETAIDE DISKUS (GALENIC /FLUTICASONE/SALMETEROL/) [Concomitant]
  6. FUROSEMIDE (FUROSEMIDE) [Concomitant]

REACTIONS (2)
  - Anaemia [None]
  - Tongue oedema [None]
